FAERS Safety Report 6665659-7 (Version None)
Quarter: 2010Q2

REPORT INFORMATION
  Report Type: 
  Country: None (occurrence: None)
  Receive Date: 20100402
  Receipt Date: 20100324
  Transmission Date: 20101027
  Serious: Yes (Other)
  Sender: FDA-Public Use
  Company Number: JP-PFIZER INC-2010037607

PATIENT
  Age: 71 Year
  Sex: Female

DRUGS (1)
  1. CELECOX [Suspect]
     Dosage: 200 MG/D
     Route: 048

REACTIONS (2)
  - IMPAIRED HEALING [None]
  - POST PROCEDURAL INFECTION [None]
